FAERS Safety Report 6251123-6 (Version None)
Quarter: 2009Q2

REPORT INFORMATION
  Report Type: 
  Country: None (occurrence: None)
  Receive Date: 20090626
  Receipt Date: 20090611
  Transmission Date: 20091009
  Serious: Yes (Hospitalization)
  Sender: FDA-Public Use
  Company Number: DSA_33877_2009

PATIENT
  Sex: Female

DRUGS (9)
  1. DILTIAZEM [Suspect]
     Indication: HYPERTENSION
     Dosage: (300 MG QD, EVERY EVENING ORAL)
     Route: 048
     Dates: start: 20090401, end: 20090407
  2. CYMBALTA (CYMBALTA - DULOXETINE HYDROCHLORIDE) [Suspect]
     Indication: DEPRESSION
     Dosage: (30 MG QD ORAL)
     Route: 048
     Dates: start: 20090325, end: 20090407
  3. MICARDIS HCT [Suspect]
     Indication: HYPERTENSION
     Dosage: (92.5 MG QD ORAL)
     Route: 048
     Dates: end: 20090407
  4. ALPRESS LP (- PRAZOSIN HYDROCHLORIDE) 2.5 MG (NOT SPECIFIED) [Suspect]
     Indication: HYPERTENSION
     Dosage: (2.5 MG QD, EVERY EVENING ORAL)
     Route: 048
     Dates: start: 20090401, end: 20090407
  5. KARDEGIC /00002703/ [Concomitant]
  6. VASTAREL [Concomitant]
  7. TEMESTA /00273201/ [Concomitant]
  8. DOLIPRANE [Concomitant]
  9. LIPANTHYL [Concomitant]

REACTIONS (3)
  - ORTHOSTATIC HYPOTENSION [None]
  - PALPITATIONS [None]
  - VERTIGO [None]
